FAERS Safety Report 4763956-3 (Version None)
Quarter: 2005Q3

REPORT INFORMATION
  Report Type: 
  Country: None (occurrence: None)
  Receive Date: 20050906
  Receipt Date: 20050818
  Transmission Date: 20060218
  Serious: Yes (Hospitalization, Other)
  Sender: FDA-Public Use
  Company Number: 2005US001078

PATIENT
  Age: 73 Year
  Sex: Female
  Weight: 92.7 kg

DRUGS (8)
  1. ADENOSCAN [Suspect]
     Indication: SCAN MYOCARDIAL PERFUSION
     Dosage: 77.90 MG, TOTAL DOSE, IV NOS
     Route: 042
     Dates: start: 20050804, end: 20050804
  2. ADENOSCAN [Suspect]
     Dates: start: 20050804, end: 20050804
  3. ENALAPRIL MALEATE [Concomitant]
  4. COLACE (DOCUSATE SODIUM) [Concomitant]
  5. COMBIVENT [Concomitant]
  6. OXYCODONE HCL [Concomitant]
  7. MOTRIN [Concomitant]
  8. DALMANE [Concomitant]

REACTIONS (2)
  - DRUG HYPERSENSITIVITY [None]
  - IDIOSYNCRATIC DRUG REACTION [None]
